FAERS Safety Report 4932670-3 (Version None)
Quarter: 2006Q1

REPORT INFORMATION
  Report Type: 
  Country: None (occurrence: None)
  Receive Date: 20060301
  Receipt Date: 20060220
  Transmission Date: 20060701
  Serious: Yes (Other)
  Sender: FDA-Public Use
  Company Number: CHPA2006US02094

PATIENT
  Age: 37 Year
  Sex: Female
  Weight: 84.8 kg

DRUGS (3)
  1. NICOTINE [Suspect]
     Indication: SMOKING CESSATION THERAPY
     Dosage: 21 MG, UNK, TRANSDERMAL
     Route: 062
  2. NICOTINE [Suspect]
     Indication: SMOKING CESSATION THERAPY
     Dosage: 14 MG, QD, TRANSDERMAL
     Route: 062
     Dates: end: 20060219
  3. ALBUTEROL [Concomitant]

REACTIONS (8)
  - BLOOD PRESSURE INCREASED [None]
  - DRUG INEFFECTIVE [None]
  - EAR INFECTION [None]
  - MALAISE [None]
  - NASOPHARYNGITIS [None]
  - PNEUMONIA [None]
  - PULMONARY OEDEMA [None]
  - SINUSITIS [None]
